FAERS Safety Report 7134284-6 (Version None)
Quarter: 2010Q4

REPORT INFORMATION
  Report Type: 
  Country: None (occurrence: None)
  Receive Date: 20101203
  Receipt Date: 20101104
  Transmission Date: 20110411
  Serious: Yes (Hospitalization)
  Sender: FDA-Public Use
  Company Number: CZ-AMGEN S.R.O.-KDC428534

PATIENT

DRUGS (9)
  1. PANITUMUMAB [Suspect]
     Indication: SQUAMOUS CELL CARCINOMA
     Dosage: UNK UNK, UNK
     Route: 042
     Dates: start: 20100722
  2. CISPLATIN [Suspect]
     Dosage: UNK UNK, UNK
     Route: 042
     Dates: start: 20100722
  3. DOCETAXEL [Suspect]
     Dosage: UNK UNK, UNK
     Route: 042
     Dates: start: 20100722
  4. ACEBUTOLOL HYDROCHLORIDE [Concomitant]
     Dosage: 200 MG, QD
     Route: 048
     Dates: start: 20000101
  5. LISINOPRIL [Concomitant]
     Dosage: 10 MG, QD
     Route: 048
     Dates: start: 20000101, end: 20100801
  6. FELODIPINE [Concomitant]
     Dosage: 10 MG, QD
     Route: 048
     Dates: start: 20000101, end: 20100804
  7. DEXAMETHASONE [Concomitant]
     Dosage: 8 MG, UNK
     Dates: start: 20100722
  8. ONDANSETRON [Concomitant]
     Dosage: 8 MG, UNK
     Dates: start: 20100722
  9. HYPNOGEN [Concomitant]
     Dosage: 10 MG, UNK
     Dates: start: 20100720, end: 20100817

REACTIONS (8)
  - APHTHOUS STOMATITIS [None]
  - ASTHENIA [None]
  - BLOOD CULTURE POSITIVE [None]
  - DIARRHOEA [None]
  - FALL [None]
  - HAEMATOCRIT DECREASED [None]
  - HYPOPHAGIA [None]
  - STAPHYLOCOCCAL INFECTION [None]
